FAERS Safety Report 4481216-5 (Version None)
Quarter: 2004Q3

REPORT INFORMATION
  Report Type: 
  Country: None (occurrence: None)
  Receive Date: 20040923
  Receipt Date: 20040802
  Transmission Date: 20050211
  Serious: No
  Sender: FDA-Public Use
  Company Number: USA040157145

PATIENT
  Age: 76 Year
  Sex: Female

DRUGS (1)
  1. FORTEO [Suspect]
     Indication: OSTEOPOROSIS
     Dates: start: 20040101

REACTIONS (8)
  - ASTHENIA [None]
  - BACK PAIN [None]
  - DYSPNOEA [None]
  - HEART RATE INCREASED [None]
  - MACULAR DEGENERATION [None]
  - MUSCLE CRAMP [None]
  - MUSCULAR WEAKNESS [None]
  - SWELLING FACE [None]
